FAERS Safety Report 15979886 (Version 2)
Quarter: 2019Q3

REPORT INFORMATION
  Report Type: Spontaneous
  Country: ES (occurrence: ES)
  Receive Date: 20190219
  Receipt Date: 20190724
  Transmission Date: 20191004
  Serious: Yes (Life-Threatening, Hospitalization, Other)
  Sender: FDA-Public Use
  Company Number: ES-ACCORD-107598

PATIENT
  Age: 3 Year
  Sex: Male
  Weight: 11 kg

DRUGS (5)
  1. SEVOFLURANE. [Suspect]
     Active Substance: SEVOFLURANE
     Indication: INDUCTION OF ANAESTHESIA
     Dosage: STRENGTH: 2 % AND 4 %
     Route: 055
  2. MIDAZOLAM [Concomitant]
     Active Substance: MIDAZOLAM HYDROCHLORIDE
     Indication: PREMEDICATION
     Route: 045
  3. CISATRACURIUM/CISATRACURIUM BESILATE [Suspect]
     Active Substance: CISATRACURIUM BESYLATE
     Indication: INDUCTION OF ANAESTHESIA
     Route: 042
  4. FENTANYL. [Suspect]
     Active Substance: FENTANYL
     Indication: INDUCTION OF ANAESTHESIA
     Route: 042
  5. PROPRANOLOL [Concomitant]
     Active Substance: PROPRANOLOL HYDROCHLORIDE
     Indication: HYPERTENSION

REACTIONS (7)
  - Oxygen saturation decreased [Recovered/Resolved]
  - Pulseless electrical activity [Recovered/Resolved]
  - Cardiac arrest [Recovered/Resolved]
  - Hypotension [Recovered/Resolved]
  - Hypoxic-ischaemic encephalopathy [Recovering/Resolving]
  - Electrocardiogram ST segment depression [Recovered/Resolved]
  - Ventricular fibrillation [Recovered/Resolved]
